FAERS Safety Report 9684911 (Version 2)
Quarter: 2013Q4

REPORT INFORMATION
  Report Type: Spontaneous
  Country: GR (occurrence: GR)
  Receive Date: 20131113
  Receipt Date: 20131113
  Transmission Date: 20140711
  Serious: Yes (Other)
  Sender: FDA-Public Use
  Company Number: GR-AMGEN-GRCSP2013077506

PATIENT
  Age: 64 Year
  Sex: Female

DRUGS (2)
  1. MIMPARA [Suspect]
     Indication: HYPERPARATHYROIDISM PRIMARY
     Dosage: 30 MG, BID
     Route: 065
     Dates: start: 20130730, end: 201309
  2. T4 [Concomitant]

REACTIONS (3)
  - Myalgia [Recovered/Resolved]
  - Musculoskeletal pain [Recovered/Resolved]
  - Blood calcium decreased [Recovered/Resolved]
